FAERS Safety Report 4499486-6 (Version None)
Quarter: 2004Q4

REPORT INFORMATION
  Report Type: 
  Country: None (occurrence: None)
  Receive Date: 20040928
  Receipt Date: 20040625
  Transmission Date: 20050328
  Serious: No
  Sender: FDA-Public Use
  Company Number: 04P-163-0264874-00

PATIENT
  Age: 90 Year
  Sex: Female
  Weight: 49.8957 kg

DRUGS (5)
  1. HUMIRA [Suspect]
     Indication: RHEUMATOID ARTHRITIS
     Dosage: 40 MG, 1 IN 2 WK, SUBCUTANEOUS
     Route: 058
     Dates: start: 20040625
  2. PREDNISONE [Concomitant]
  3. CALCIUM [Concomitant]
  4. METOPROLOL [Concomitant]
  5. CLOPIDOGREL BISULFATE [Concomitant]

REACTIONS (1)
  - INJECTION SITE PAIN [None]
